FAERS Safety Report 13779371 (Version 1)
Quarter: 2017Q3

REPORT INFORMATION
  Report Type: Other
  Country: GB (occurrence: IT)
  Receive Date: 20170721
  Receipt Date: 20170721
  Transmission Date: 20171127
  Serious: Yes (Life-Threatening, Other)
  Sender: FDA-Public Use
  Company Number: IT-INTERNATIONAL MEDICATION SYSTEMS, LIMITED-2023608

PATIENT
  Age: 74 Year
  Sex: Male

DRUGS (5)
  1. PROPOFOL. [Concomitant]
     Active Substance: PROPOFOL
  2. ATROPINE SULFATE. [Suspect]
     Active Substance: ATROPINE SULFATE
     Indication: BRADYCARDIA
  3. DESFLURANE. [Concomitant]
     Active Substance: DESFLURANE
  4. FENTANYL. [Concomitant]
     Active Substance: FENTANYL
  5. ROCURONIUM [Concomitant]
     Active Substance: ROCURONIUM BROMIDE

REACTIONS (1)
  - Atrioventricular block complete [Recovered/Resolved]
